FAERS Safety Report 8073186-8 (Version None)
Quarter: 2012Q1

REPORT INFORMATION
  Report Type: 
  Country: None (occurrence: None)
  Receive Date: 20120126
  Receipt Date: 20120116
  Transmission Date: 20120608
  Serious: Yes (Hospitalization)
  Sender: FDA-Public Use
  Company Number: US-ELI_LILLY_AND_COMPANY-US201201005150

PATIENT
  Sex: Female

DRUGS (8)
  1. FORTEO [Suspect]
     Indication: OSTEOPOROSIS
     Dosage: 20 UG, QD
     Route: 065
     Dates: start: 20091201
  2. FORTEO [Suspect]
     Dosage: 20 UG, QD
     Route: 065
  3. OMEPRAZOLE [Concomitant]
     Dosage: UNK
  4. VITAMIN B-12 [Concomitant]
     Dosage: UNK
  5. VITAMIN D [Concomitant]
     Dosage: UNK
  6. CALCIUM [Concomitant]
     Dosage: UNK UNK, BID
  7. PREVALITE [Concomitant]
     Dosage: UNK UNK, BID
  8. ASPIRIN [Concomitant]
     Dosage: UNK

REACTIONS (4)
  - MEDICATION ERROR [None]
  - MEMORY IMPAIRMENT [None]
  - JOINT DISLOCATION [None]
  - GROIN PAIN [None]
